FAERS Safety Report 24433989 (Version 4)
Quarter: 2024Q4

REPORT INFORMATION
  Report Type: Spontaneous
  Country: US (occurrence: US)
  Receive Date: 20241014
  Receipt Date: 20241112
  Transmission Date: 20250115
  Serious: Yes (Death, Other)
  Sender: AMGEN
  Company Number: US-AMGEN-USASP2024200296

PATIENT
  Age: 44 Year
  Sex: Female

DRUGS (3)
  1. PREDNISONE [Suspect]
     Active Substance: PREDNISONE
     Indication: Sarcoma metastatic
     Dosage: UNK
     Route: 048
  2. METHYLPREDNISOLONE [Concomitant]
     Active Substance: METHYLPREDNISOLONE
     Indication: Sarcoma metastatic
     Dosage: 1 GRAM, QD
     Route: 042
  3. HUMAN IMMUNOGLOBULIN G [Concomitant]
     Active Substance: HUMAN IMMUNOGLOBULIN G
     Indication: Sarcoma metastatic
     Dosage: UNK
     Route: 042

REACTIONS (5)
  - Metastases to central nervous system [Fatal]
  - Status epilepticus [Unknown]
  - IIIrd nerve paralysis [Unknown]
  - Off label use [Unknown]
  - Drug ineffective for unapproved indication [Unknown]
